FAERS Safety Report 15166184 (Version 1)
Quarter: 2018Q3

REPORT INFORMATION
  Report Type: Spontaneous
  Country: US (occurrence: US)
  Receive Date: 20180719
  Receipt Date: 20180719
  Transmission Date: 20181010
  Serious: Yes (Other)
  Sender: FDA-Public Use
  Company Number: US-LPDUSPRD-20181273

PATIENT
  Age: 82 Year
  Sex: Male

DRUGS (1)
  1. DEXAMETHASONE SODIUM PHOSPHATE INJECTION, USP (4930?25) [Suspect]
     Active Substance: DEXAMETHASONE SODIUM PHOSPHATE
     Dosage: 25 MG EVERY 6 HOURS
     Route: 042

REACTIONS (3)
  - Hallucination [Unknown]
  - Psychotic disorder [Unknown]
  - Product use in unapproved indication [Recovered/Resolved]
